FAERS Safety Report 11178645 (Version 1)
Quarter: 2015Q2

REPORT INFORMATION
  Report Type: Spontaneous
  Country: US (occurrence: US)
  Receive Date: 20150610
  Receipt Date: 20150610
  Transmission Date: 20150821
  Serious: No
  Sender: FDA-Public Use
  Company Number: US-PFIZER INC-2015190211

PATIENT
  Age: 86 Year
  Sex: Male
  Weight: 83.9 kg

DRUGS (1)
  1. UNASYN [Suspect]
     Active Substance: AMPICILLIN SODIUM\SULBACTAM SODIUM
     Indication: PROSTATE INFECTION
     Dosage: UNK (THREE TIMES FOR THREE DAYS)
     Dates: start: 20150512

REACTIONS (2)
  - Malaise [Unknown]
  - Diarrhoea [Recovered/Resolved]
